FAERS Safety Report 4685056-3 (Version None)
Quarter: 2005Q2

REPORT INFORMATION
  Report Type: 
  Country: None (occurrence: None)
  Receive Date: 20050608
  Receipt Date: 20050527
  Transmission Date: 20051028
  Serious: Yes (Other)
  Sender: FDA-Public Use
  Company Number: 200514978GDDC

PATIENT
  Age: 56 Year
  Sex: Male

DRUGS (1)
  1. CEFOTAXIME [Suspect]
     Indication: PNEUMONIA
     Dosage: DOSE: UNK

REACTIONS (4)
  - ARTHRALGIA [None]
  - EOSINOPHILIA [None]
  - RASH [None]
  - TRANSAMINASES INCREASED [None]
